FAERS Safety Report 10465065 (Version 3)
Quarter: 2014Q4

REPORT INFORMATION
  Report Type: Report from Study
  Country: AU (occurrence: AU)
  Receive Date: 20140919
  Receipt Date: 20141217
  Transmission Date: 20150528
  Serious: Yes (Hospitalization)
  Sender: FDA-Public Use
  Company Number: AU-009507513-1406AUS005423

PATIENT
  Age: 29 Year
  Sex: Female
  Weight: 129.8 kg

DRUGS (5)
  1. HALOPERIDOL. [Concomitant]
     Active Substance: HALOPERIDOL
     Indication: NAUSEA
     Dosage: 1.5 MG, NOCTE, PRN
     Route: 048
     Dates: start: 20140528
  2. GRANISETRON [Concomitant]
     Active Substance: GRANISETRON
     Indication: NAUSEA
     Dosage: 2 MG, QD(DAY 1-4 OF CHEMOTHERAPY)
     Route: 048
     Dates: start: 20140430
  3. KEPPRA [Concomitant]
     Active Substance: LEVETIRACETAM
     Indication: CONVULSION PROPHYLAXIS
     Dosage: 250 MG, BID, MAVE/NOCTE
     Route: 048
     Dates: start: 20140203
  4. TEMOZOLOMIDE. [Suspect]
     Active Substance: TEMOZOLOMIDE
     Indication: GLIOMA
     Dosage: 180 MG, UNK
     Route: 048
     Dates: start: 20140212, end: 20140402
  5. TEMOZOLOMIDE. [Suspect]
     Active Substance: TEMOZOLOMIDE
     Dosage: 480 MG, UNK
     Route: 048
     Dates: start: 20140501, end: 20140529

REACTIONS (3)
  - Gastroenteritis viral [Unknown]
  - Vomiting [Recovered/Resolved]
  - Nausea [Recovered/Resolved]

NARRATIVE: CASE EVENT DATE: 20140601
